FAERS Safety Report 6849937-4 (Version None)
Quarter: 2010Q3

REPORT INFORMATION
  Report Type: 
  Country: None (occurrence: None)
  Receive Date: 20100716
  Receipt Date: 20071005
  Transmission Date: 20110219
  Serious: No
  Sender: FDA-Public Use
  Company Number: US-PFIZER INC-2007085764

PATIENT
  Sex: Female
  Weight: 63.636 kg

DRUGS (3)
  1. CHANTIX [Suspect]
     Indication: SMOKING CESSATION THERAPY
     Dates: start: 20070905
  2. PROZAC [Suspect]
     Indication: AFFECTIVE DISORDER
  3. MEDROXYPROGESTERONE [Concomitant]

REACTIONS (3)
  - AFFECTIVE DISORDER [None]
  - ANGER [None]
  - DRUG INEFFECTIVE [None]
